FAERS Safety Report 10680074 (Version 5)
Quarter: 2015Q2

REPORT INFORMATION
  Report Type: Spontaneous
  Country: JP (occurrence: JP)
  Receive Date: 20141229
  Receipt Date: 20150518
  Transmission Date: 20150821
  Serious: Yes (Death, Hospitalization, Other)
  Sender: FDA-Public Use
  Company Number: JP-GLAXOSMITHKLINE-JP2014JPN042287

PATIENT
  Age: 66 Year
  Sex: Female
  Weight: 41 kg

DRUGS (12)
  1. FAMOTIDINE. [Concomitant]
     Active Substance: FAMOTIDINE
     Dosage: 20 MG, QD
  2. VASOLAN [Concomitant]
     Active Substance: VERAPAMIL HYDROCHLORIDE
     Dosage: 40 MG, TID
  3. ROHYPNOL [Concomitant]
     Active Substance: FLUNITRAZEPAM
     Dosage: 2 MG, QD
  4. VOTRIENT [Suspect]
     Active Substance: PAZOPANIB HYDROCHLORIDE
     Indication: ANGIOSARCOMA METASTATIC
     Dosage: 400 MG, QD
     Route: 048
     Dates: start: 20140614, end: 20140626
  5. VOTRIENT [Suspect]
     Active Substance: PAZOPANIB HYDROCHLORIDE
     Dosage: 200 MG, QD
     Route: 048
     Dates: start: 20140708, end: 20140719
  6. MAINTATE [Concomitant]
     Active Substance: BISOPROLOL FUMARATE
     Dosage: 2.5 MG, QD
  7. DECADRON [Concomitant]
     Active Substance: DEXAMETHASONE
     Dosage: UNK
  8. MAGMITT [Concomitant]
     Active Substance: MAGNESIUM OXIDE
     Dosage: 330 MG, TID
  9. CEFOPERAZONE SODIUM + SULBACTAM SODIUM [Concomitant]
     Active Substance: CEFOPERAZONE SODIUM\SULBACTAM SODIUM
     Dosage: UNK
     Dates: start: 20140610
  10. DENOTAS [Concomitant]
     Active Substance: CALCIUM CARBONATE\CHOLECALCIFEROL\MAGNESIUM CARBONATE
     Dosage: UNK
  11. BIO-THREE [Concomitant]
     Active Substance: HERBALS
     Dosage: 1 DF, TID
  12. VOTRIENT [Suspect]
     Active Substance: PAZOPANIB HYDROCHLORIDE
     Dosage: 200 MG, QD
     Route: 048
     Dates: start: 20140727, end: 20141207

REACTIONS (16)
  - Melaena [Unknown]
  - Loss of consciousness [Unknown]
  - Diarrhoea [Unknown]
  - Diarrhoea [Unknown]
  - Subarachnoid haemorrhage [Fatal]
  - Depressed level of consciousness [Unknown]
  - Gamma-glutamyltransferase increased [Unknown]
  - Candida infection [Unknown]
  - Subdural haematoma [Unknown]
  - Herpes zoster [Unknown]
  - Oliguria [Recovering/Resolving]
  - Cardiac failure [Recovering/Resolving]
  - Platelet count decreased [Unknown]
  - Coagulopathy [Unknown]
  - Coma [Unknown]
  - Blood pressure decreased [Unknown]

NARRATIVE: CASE EVENT DATE: 20140614
